FAERS Safety Report 16677785 (Version 1)
Quarter: 2019Q3

REPORT INFORMATION
  Report Type: Spontaneous
  Country: CN (occurrence: CN)
  Receive Date: 20190807
  Receipt Date: 20190807
  Transmission Date: 20191004
  Serious: Yes (Hospitalization, Other)
  Sender: FDA-Public Use
  Company Number: CN-ENDO PHARMACEUTICALS INC-2019-106918

PATIENT
  Sex: Male

DRUGS (1)
  1. ADRENALIN [Suspect]
     Active Substance: EPINEPHRINE
     Indication: ANAPHYLACTIC REACTION
     Dosage: 1 MG, UNKNOWN
     Route: 042

REACTIONS (3)
  - Overdose [Unknown]
  - Arteriospasm coronary [Recovered/Resolved]
  - Incorrect route of product administration [Unknown]
